FAERS Safety Report 12321776 (Version 2)
Quarter: 2018Q4

REPORT INFORMATION
  Report Type: Spontaneous
  Country: US (occurrence: US)
  Receive Date: 20160502
  Receipt Date: 20181213
  Transmission Date: 20190204
  Serious: Yes (Other)
  Sender: FDA-Public Use
  Company Number: US-TEVA-656494ACC

PATIENT
  Sex: Female

DRUGS (1)
  1. PLAN B ONE-STEP [Suspect]
     Active Substance: LEVONORGESTREL
     Indication: POST COITAL CONTRACEPTION

REACTIONS (2)
  - Maternal exposure before pregnancy [Unknown]
  - Pregnancy after post coital contraception [Unknown]
